FAERS Safety Report 15293594 (Version 2)
Quarter: 2019Q1

REPORT INFORMATION
  Report Type: Spontaneous
  Country: US (occurrence: US)
  Receive Date: 20180820
  Receipt Date: 20190322
  Transmission Date: 20190417
  Serious: No
  Sender: FDA-Public Use
  Company Number: US-TEVA-813137ACC

PATIENT
  Age: 59 Year
  Sex: Female

DRUGS (9)
  1. PREDNISONE. [Concomitant]
     Active Substance: PREDNISONE
  2. VENLAFAXINE [Suspect]
     Active Substance: VENLAFAXINE HYDROCHLORIDE
     Dosage: 75 MILLIGRAM DAILY;
     Dates: start: 20170919, end: 20170928
  3. VENLAFAXINE [Suspect]
     Active Substance: VENLAFAXINE HYDROCHLORIDE
     Dosage: 150 MILLIGRAM DAILY;
     Dates: start: 20170929
  4. TYLENOL [Concomitant]
     Active Substance: ACETAMINOPHEN
  5. VENLAFAXINE [Suspect]
     Active Substance: VENLAFAXINE HYDROCHLORIDE
     Indication: ANXIETY
     Dosage: 75 MILLIGRAM DAILY; EXTENDED RELEASE
     Dates: start: 20170920, end: 20170928
  6. PREDNISONE. [Concomitant]
     Active Substance: PREDNISONE
     Dates: start: 201706
  7. PREDNISONE. [Concomitant]
     Active Substance: PREDNISONE
  8. PREDNISONE. [Concomitant]
     Active Substance: PREDNISONE
  9. LORAZEPAM. [Concomitant]
     Active Substance: LORAZEPAM

REACTIONS (6)
  - Product substitution issue [Unknown]
  - Product solubility abnormal [Unknown]
  - Dizziness [Recovered/Resolved]
  - Nausea [Recovered/Resolved]
  - Anxiety [Recovered/Resolved]
  - Adverse drug reaction [Unknown]

NARRATIVE: CASE EVENT DATE: 20170921
